FAERS Safety Report 24894868 (Version 1)
Quarter: 2025Q1

REPORT INFORMATION
  Report Type: Spontaneous
  Country: RU (occurrence: RU)
  Receive Date: 20250128
  Receipt Date: 20250128
  Transmission Date: 20250408
  Serious: Yes (Life-Threatening, Hospitalization, Other)
  Sender: SANDOZ
  Company Number: RU-SANDOZ-SDZ2025RU005058

PATIENT
  Sex: Female

DRUGS (1)
  1. AMOXICILLIN\CLAVULANATE POTASSIUM [Suspect]
     Active Substance: AMOXICILLIN\CLAVULANATE POTASSIUM
     Indication: Lymphadenopathy
     Route: 065

REACTIONS (7)
  - Toxic epidermal necrolysis [Recovering/Resolving]
  - Stevens-Johnson syndrome [Recovering/Resolving]
  - Pharyngeal haemorrhage [Recovering/Resolving]
  - Mucosal inflammation [Recovering/Resolving]
  - Weight decreased [Unknown]
  - Body temperature increased [Unknown]
  - Onychoclasis [Recovering/Resolving]
